FAERS Safety Report 24131108 (Version 1)
Quarter: 2024Q3

REPORT INFORMATION
  Report Type: Report from Study
  Country: FR (occurrence: FR)
  Receive Date: 20240724
  Receipt Date: 20240724
  Transmission Date: 20241017
  Serious: Yes (Other)
  Sender: AUROBINDO
  Company Number: FR-AUROBINDO-AUR-APL-2024-036514

PATIENT
  Age: 50 Year
  Sex: Male

DRUGS (1)
  1. METHYLPHENIDATE [Suspect]
     Active Substance: METHYLPHENIDATE
     Indication: Product used for unknown indication
     Dosage: 10 MILLIGRAM, DAILY
     Route: 065
     Dates: start: 1985

REACTIONS (3)
  - Tricuspid valve disease [Unknown]
  - Mitral valve disease [Unknown]
  - Aortic valve disease [Unknown]

NARRATIVE: CASE EVENT DATE: 20150801
